FAERS Safety Report 7596713-3 (Version None)
Quarter: 2011Q3

REPORT INFORMATION
  Report Type: 
  Country: None (occurrence: None)
  Receive Date: 20110708
  Receipt Date: 20110705
  Transmission Date: 20111222
  Serious: Yes (Hospitalization, Other)
  Sender: FDA-Public Use
  Company Number: DE-AMGEN-QUU432955

PATIENT
  Age: 21 Year
  Sex: Female
  Weight: 76 kg

DRUGS (2)
  1. NEUPOGEN [Suspect]
     Indication: PERIPHERAL BLOOD STEM CELL APHERESIS
     Dosage: UNK UNK, UNK
     Route: 058
     Dates: start: 20100821, end: 20100821
  2. NEUPOGEN [Suspect]
     Dosage: UNK UNK, UNK
     Route: 058
     Dates: start: 20100821, end: 20100821

REACTIONS (2)
  - URTICARIA [None]
  - RASH GENERALISED [None]
